FAERS Safety Report 16751157 (Version 1)
Quarter: 2019Q3

REPORT INFORMATION
  Report Type: Spontaneous
  Country: US (occurrence: US)
  Receive Date: 20190828
  Receipt Date: 20190828
  Transmission Date: 20191005
  Serious: Yes (Other)
  Sender: FDA-Public Use
  Company Number: US-BAYER-2019-137934

PATIENT
  Age: 31 Year
  Sex: Male

DRUGS (2)
  1. KOGENATE FS [Suspect]
     Active Substance: ANTIHEMOPHILIC FACTOR, HUMAN RECOMBINANT
     Indication: FACTOR VIII DEFICIENCY
     Dosage: 2087 U, TWO DOSES
     Route: 042
     Dates: start: 20190628
  2. KOGENATE FS [Suspect]
     Active Substance: ANTIHEMOPHILIC FACTOR, HUMAN RECOMBINANT
     Indication: FACTOR VIII DEFICIENCY
     Dosage: 2087 U, TWO DOSES
     Route: 042
     Dates: start: 20190628

REACTIONS (3)
  - Haemarthrosis [None]
  - Recalled product [None]
  - Recalled product administered [None]

NARRATIVE: CASE EVENT DATE: 20190715
